FAERS Safety Report 21436185 (Version 1)
Quarter: 2022Q4

REPORT INFORMATION
  Report Type: Spontaneous
  Country: US (occurrence: US)
  Receive Date: 20221010
  Receipt Date: 20221010
  Transmission Date: 20230113
  Serious: No
  Sender: FDA-Public Use
  Company Number: US-BRISTOL-MYERS SQUIBB COMPANY-2022-117523

PATIENT
  Age: 65 Year
  Sex: Female

DRUGS (2)
  1. ELIQUIS [Suspect]
     Active Substance: APIXABAN
     Indication: Heart valve replacement
     Dosage: DOSE : UNAVAILABLE;     FREQ : UNAVAILABLE
     Route: 065
  2. ASPIRIN [Concomitant]
     Active Substance: ASPIRIN
     Indication: Product used for unknown indication
     Dosage: DOSE : UNAVAILABLE;     FREQ : UNAVAILABLE
     Route: 065

REACTIONS (1)
  - Intentional product use issue [Unknown]
